FAERS Safety Report 6307748-2 (Version None)
Quarter: 2009Q3

REPORT INFORMATION
  Report Type: 
  Country: None (occurrence: None)
  Receive Date: 20090813
  Receipt Date: 20090807
  Transmission Date: 20100115
  Serious: Yes (Hospitalization)
  Sender: FDA-Public Use
  Company Number: PHHO2009US01235

PATIENT
  Sex: Female
  Weight: 62.9 kg

DRUGS (14)
  1. BLINDED ACZ885 ACZ+SOLINF+COPD [Suspect]
     Indication: CHRONIC OBSTRUCTIVE PULMONARY DISEASE
     Dosage: DOUBLE BLIND
     Route: 042
     Dates: start: 20080410
  2. BLINDED NO TREATMENT RECEIVED NOMED [Suspect]
     Indication: CHRONIC OBSTRUCTIVE PULMONARY DISEASE
     Dosage: DOUBLE BLIND
     Route: 042
     Dates: start: 20080410
  3. BLINDED PLACEBO COMP-PLA+ [Suspect]
     Indication: CHRONIC OBSTRUCTIVE PULMONARY DISEASE
     Dosage: DOUBLE BLIND
     Route: 042
     Dates: start: 20080410
  4. DILTIAZEM [Concomitant]
     Indication: HYPERTENSION
     Dosage: 300 MG, QD
     Dates: start: 19870101
  5. EVISTA [Concomitant]
     Indication: OSTEOPOROSIS PROPHYLAXIS
     Dosage: 60 MG, QD
     Dates: start: 19980101
  6. NITROGLYCERIN [Concomitant]
     Indication: PROPHYLAXIS
     Dosage: 2.5 MG, BID
     Dates: start: 19900101
  7. BENICAR [Concomitant]
     Indication: HYPERTENSION
     Dosage: 20 MG, QD
     Dates: start: 19900101
  8. LOVASTATIN [Concomitant]
     Indication: HYPERCHOLESTEROLAEMIA
     Dosage: 10 MG, QD
     Route: 048
     Dates: start: 19900101
  9. ADVAIR HFA [Concomitant]
     Indication: CHRONIC OBSTRUCTIVE PULMONARY DISEASE
  10. TRIAMTERENE AND HYDROCHLOROTHIAZID ^HARRIS^ [Concomitant]
     Indication: HYPERTENSION
  11. SPIRIVA [Concomitant]
     Indication: CHRONIC OBSTRUCTIVE PULMONARY DISEASE
  12. OMEPRAZOLE [Concomitant]
     Indication: DYSPEPSIA
  13. HEPARIN [Concomitant]
  14. INTEGRILIN [Concomitant]

REACTIONS (6)
  - ACUTE MYOCARDIAL INFARCTION [None]
  - ANGINA UNSTABLE [None]
  - CORONARY ANGIOPLASTY [None]
  - CORONARY ARTERY DISEASE [None]
  - FATIGUE [None]
  - UPPER GASTROINTESTINAL HAEMORRHAGE [None]
